FAERS Safety Report 5128656-9 (Version None)
Quarter: 2006Q4

REPORT INFORMATION
  Report Type: 
  Country: None (occurrence: None)
  Receive Date: 20061011
  Receipt Date: 20061002
  Transmission Date: 20070319
  Serious: Yes (Other)
  Sender: FDA-Public Use
  Company Number: 230481

PATIENT
  Age: 37 Year
  Sex: Female

DRUGS (2)
  1. XOLAIR [Suspect]
     Indication: DRUG USE FOR UNKNOWN INDICATION
     Dosage: 225 MG, Q2W, SUBCUTANEOUS
     Route: 058
     Dates: start: 20060101
  2. PAIN MEDICATION (ANALGESIC NOS) [Concomitant]

REACTIONS (4)
  - AMNESIA [None]
  - COORDINATION ABNORMAL [None]
  - FIBROMYALGIA [None]
  - SPEECH DISORDER [None]
